FAERS Safety Report 6207535-X (Version None)
Quarter: 2009Q2

REPORT INFORMATION
  Report Type: 
  Country: None (occurrence: None)
  Receive Date: 20090528
  Receipt Date: 20090520
  Transmission Date: 20091009
  Serious: Yes (Other)
  Sender: FDA-Public Use
  Company Number: US-WYE-H09488809

PATIENT
  Age: 68 Year
  Sex: Female
  Weight: 111.23 kg

DRUGS (11)
  1. PRISTIQ [Suspect]
     Indication: DEPRESSION
     Route: 048
     Dates: start: 20090301, end: 20090519
  2. PRISTIQ [Suspect]
     Route: 048
     Dates: start: 20090520
  3. CLONAZEPAM [Concomitant]
     Route: 065
  4. CARBAMAZEPINE [Concomitant]
     Dosage: 300 MG IN THE AM 60 MG AT BEDTIME
     Route: 065
  5. VYTORIN [Concomitant]
     Indication: BLOOD CHOLESTEROL ABNORMAL
     Dosage: UNKNOWN DOSE IN THE AM
     Route: 065
  6. KLOR-CON [Concomitant]
     Dosage: UNKNOWN DOSE IN THE AM
     Route: 065
  7. FUROSEMIDE [Concomitant]
     Indication: CARDIAC FAILURE CONGESTIVE
     Dosage: UNKNOWN DOSE IN THE AM
     Route: 065
  8. NADOLOL [Concomitant]
     Indication: TREMOR
     Dosage: UNKNOWN DOSE IN THE AM
     Route: 065
  9. DIOVAN [Concomitant]
     Dosage: UNKNOWN DOSE IN THE AM
     Route: 065
  10. SEROQUEL [Concomitant]
     Dosage: 300 MG AS NEEDED
     Route: 065
  11. CLONIDINE [Concomitant]
     Indication: HYPERTENSION
     Dosage: UNKNOWN DOSE AT BEDTIME
     Route: 065

REACTIONS (7)
  - ASTHENIA [None]
  - FEELING ABNORMAL [None]
  - HEADACHE [None]
  - HYPOAESTHESIA [None]
  - MENTAL IMPAIRMENT [None]
  - PALLOR [None]
  - SUICIDAL IDEATION [None]
